FAERS Safety Report 6897347-6 (Version None)
Quarter: 2010Q3

REPORT INFORMATION
  Report Type: 
  Country: None (occurrence: None)
  Receive Date: 20100802
  Receipt Date: 20070615
  Transmission Date: 20110219
  Serious: No
  Sender: FDA-Public Use
  Company Number: US-PFIZER INC-2007026318

PATIENT
  Sex: Female
  Weight: 88.5 kg

DRUGS (6)
  1. LYRICA [Suspect]
     Indication: HEADACHE
     Dates: start: 20070201
  2. WELLBUTRIN [Concomitant]
  3. CODEINE [Concomitant]
  4. KLONOPIN [Concomitant]
  5. CRESTOR [Concomitant]
  6. TOPAMAX [Concomitant]

REACTIONS (4)
  - DEPRESSION [None]
  - DRUG INEFFECTIVE [None]
  - FALL [None]
  - INSOMNIA [None]
